FAERS Safety Report 6689406-8 (Version None)
Quarter: 2010Q2

REPORT INFORMATION
  Report Type: 
  Country: None (occurrence: None)
  Receive Date: 20100419
  Receipt Date: 20100419
  Transmission Date: 20101027
  Serious: No
  Sender: FDA-Public Use
  Company Number: None

PATIENT
  Sex: Male

DRUGS (3)
  1. CITALOPRAM HYDROBROMIDE [Suspect]
     Indication: ANXIETY
     Dosage: 20 MG DAILY ORALLY
     Route: 048
  2. CITALOPRAM HYDROBROMIDE [Suspect]
     Indication: DEPRESSION
     Dosage: 20 MG DAILY ORALLY
     Route: 048
  3. CELEXA [Suspect]

REACTIONS (3)
  - PRODUCT SUBSTITUTION ISSUE [None]
  - THERAPEUTIC RESPONSE DECREASED [None]
  - THINKING ABNORMAL [None]
